FAERS Safety Report 6198848-9 (Version None)
Quarter: 2009Q2

REPORT INFORMATION
  Report Type: 
  Country: None (occurrence: None)
  Receive Date: 20090522
  Receipt Date: 20090515
  Transmission Date: 20091009
  Serious: Yes (Hospitalization)
  Sender: FDA-Public Use
  Company Number: US-BIOGENIDEC-2007BI014856

PATIENT
  Age: 46 Year
  Sex: Female
  Weight: 68 kg

DRUGS (2)
  1. AVONEX [Suspect]
     Indication: MULTIPLE SCLEROSIS
     Route: 030
     Dates: start: 20030901, end: 20070701
  2. AVONEX [Suspect]
     Route: 030
     Dates: start: 19970601, end: 20030801

REACTIONS (3)
  - DIABETES MELLITUS [None]
  - INFLUENZA LIKE ILLNESS [None]
  - ORGANISING PNEUMONIA [None]
